FAERS Safety Report 9206278 (Version 1)
Quarter: 2013Q2

REPORT INFORMATION
  Report Type: Spontaneous
  Country: IT (occurrence: None)
  Receive Date: 20130401
  Receipt Date: 20130401
  Transmission Date: 20140414
  Serious: Yes (Life-Threatening)
  Sender: FDA-Public Use
  Company Number: 2013-05449

PATIENT
  Age: 78 Year
  Sex: Male
  Weight: 60 kg

DRUGS (5)
  1. PACLITAXEL (UNKNOWN) (PACLITAXEL) UNK, UNKUNK [Suspect]
     Dosage: 131.2 MG, SINGLE, INTRAVENOUS
     Route: 042
     Dates: start: 20120823, end: 20120823
  2. KYTRIL (GRANISETRON HYDROCHLORIDE) [Concomitant]
  3. DEXAMETHASONE/00016002/ (DEXAMETHASONE SODIUM PHOSPHATE) [Concomitant]
  4. RANIDIL (RANITIDINE HYDROCHLORIDE) [Concomitant]
  5. TRIMETON/00072502/(CHLORPHENAMINE MALEATE) [Concomitant]

REACTIONS (2)
  - Sensorimotor disorder [None]
  - Asthenia [None]
